FAERS Safety Report 18157683 (Version 3)
Quarter: 2021Q1

REPORT INFORMATION
  Report Type: Spontaneous
  Country: CO (occurrence: CO)
  Receive Date: 20200817
  Receipt Date: 20210222
  Transmission Date: 20210419
  Serious: Yes (Hospitalization, Other)
  Sender: FDA-Public Use
  Company Number: CO-EMD SERONO-9173634

PATIENT
  Age: 57 Year
  Sex: Female
  Weight: 63 kg

DRUGS (9)
  1. METFORMIN HYDROCHLORIDE. [Suspect]
     Active Substance: METFORMIN HYDROCHLORIDE
     Indication: DIABETES MELLITUS
     Dosage: STARTED 8 YEARS AGO
  2. LEVOTHYROXINE. [Concomitant]
     Active Substance: LEVOTHYROXINE
     Indication: THYROID DISORDER
  3. RIBOCICLIB. [Suspect]
     Active Substance: RIBOCICLIB
     Route: 048
  4. LOSARTAN                           /01121602/ [Suspect]
     Active Substance: LOSARTAN
     Indication: HYPERTENSION
     Dosage: STARTED 3 YEARS AGO
  5. FEMARA [Suspect]
     Active Substance: LETROZOLE
     Indication: BREAST CANCER
     Route: 048
     Dates: start: 202002, end: 2020
  6. ATORVASTATIN CALCIUM. [Suspect]
     Active Substance: ATORVASTATIN CALCIUM
     Indication: BLOOD TRIGLYCERIDES
  7. INSULIN [Concomitant]
     Active Substance: INSULIN NOS
     Indication: DIABETES MELLITUS
     Dates: start: 2020
  8. RIBOCICLIB. [Suspect]
     Active Substance: RIBOCICLIB
     Indication: BREAST CANCER METASTATIC
     Route: 048
     Dates: start: 202002, end: 2020
  9. VALPROIC ACID. [Concomitant]
     Active Substance: VALPROIC ACID
     Indication: PRODUCT USED FOR UNKNOWN INDICATION

REACTIONS (8)
  - Metastases to bone [Unknown]
  - Platelet count decreased [Unknown]
  - Diarrhoea [Recovered/Resolved]
  - Haematuria [Unknown]
  - Constipation [Not Recovered/Not Resolved]
  - Platelet count increased [Unknown]
  - Ill-defined disorder [Unknown]
  - Anaemia [Recovered/Resolved]

NARRATIVE: CASE EVENT DATE: 2020
